FAERS Safety Report 7978246-5 (Version None)
Quarter: 2011Q4

REPORT INFORMATION
  Report Type: 
  Country: None (occurrence: None)
  Receive Date: 20111214
  Receipt Date: 20111207
  Transmission Date: 20120403
  Serious: Yes (Death)
  Sender: FDA-Public Use
  Company Number: JP-PFIZER INC-2011261803

PATIENT
  Age: 78 Year
  Sex: Male
  Weight: 63.5 kg

DRUGS (29)
  1. OXYCONTIN [Concomitant]
     Dosage: 5 MG, 2X/DAY
     Route: 048
     Dates: start: 20110805, end: 20110815
  2. OXYCONTIN [Concomitant]
     Dosage: 15 MG, 2X/DAY
     Route: 048
     Dates: start: 20110827, end: 20111014
  3. LASIX [Concomitant]
     Dosage: 20 MG, 1X/DAY
     Route: 048
     Dates: start: 20111010, end: 20111014
  4. ALDACTONE [Concomitant]
     Dosage: 25 MG, 1X/DAY
     Route: 048
     Dates: start: 20111010, end: 20111014
  5. ZOMETA [Concomitant]
     Dosage: 4 MG, 1X/DAY
     Route: 041
     Dates: start: 20110907, end: 20110907
  6. MANNIGEN [Concomitant]
     Dosage: 40 ML, 1X/DAY
     Route: 041
     Dates: start: 20111008, end: 20111008
  7. DECADRON [Suspect]
     Dosage: 19.8 MG, 3X/DAY
     Route: 042
     Dates: start: 20110805, end: 20110807
  8. DECADRON [Suspect]
     Dosage: 9.9 MG, 2X/DAY
     Route: 042
     Dates: start: 20110817, end: 20110819
  9. DECADRON [Suspect]
     Dosage: 13.2 MG, 3X/DAY
     Route: 042
     Dates: start: 20110811, end: 20110813
  10. DECADRON [Suspect]
     Dosage: 1 MG, 1X/DAY
     Dates: start: 20111005, end: 20111020
  11. OXYCONTIN [Concomitant]
     Dosage: 10 MG, 2X/DAY
     Route: 048
     Dates: start: 20110816, end: 20110826
  12. PURSENNID [Concomitant]
     Indication: CONSTIPATION
     Dosage: 24 MG, 1X/DAY
     Route: 048
     Dates: start: 20110826, end: 20111020
  13. ZOMETA [Concomitant]
     Dosage: 4 MG, 1X/DAY
     Route: 041
     Dates: start: 20111005, end: 20111005
  14. DECADRON [Suspect]
     Dosage: 18.5 MG, 3X/DAY
     Route: 042
     Dates: start: 20110808, end: 20110810
  15. DECADRON [Suspect]
     Dosage: 9.9 MG, 3X/DAY
     Route: 042
     Dates: start: 20110814, end: 20110816
  16. DECADRON [Suspect]
     Dosage: 9.9 MG, 1X/DAY
     Route: 042
     Dates: start: 20110820, end: 20110822
  17. DECADRON [Suspect]
     Dosage: 1.5 MG, 2X/DAY
     Route: 048
     Dates: start: 20110902, end: 20110908
  18. MAGNESIUM OXIDE [Concomitant]
     Dosage: 660 MG, 3X/DAY
     Route: 048
     Dates: start: 20110921, end: 20111020
  19. LASIX [Concomitant]
     Dosage: 100 MG, 1X/DAY
     Route: 041
     Dates: start: 20111008, end: 20111008
  20. FENTANYL CITRATE [Concomitant]
     Dosage: 3 DF, 1X/DAY
     Route: 062
     Dates: start: 20111015, end: 20111020
  21. TEMSIROLIMUS [Suspect]
     Indication: RENAL CELL CARCINOMA
     Dosage: 15 MG, WEEKLY
     Route: 041
     Dates: start: 20111014, end: 20111021
  22. DECADRON [Suspect]
     Dosage: 4 MG, 2X/DAY
     Route: 048
     Dates: start: 20110823, end: 20110825
  23. DECADRON [Suspect]
     Dosage: 1 MG, 2X/DAY
     Route: 048
     Dates: start: 20110909, end: 20111004
  24. LOXONIN [Concomitant]
     Dosage: 60 MG, 3X/DAY
     Route: 048
     Dates: start: 20110812, end: 20111020
  25. MAGNESIUM OXIDE [Concomitant]
     Indication: CONSTIPATION
     Dosage: 330 MG, 3X/DAY
     Route: 048
     Dates: start: 20110811, end: 20110920
  26. LACTEC G [Concomitant]
     Indication: DECREASED APPETITE
     Dosage: 1000 ML, 1X/DAY
     Route: 041
     Dates: start: 20111016, end: 20111016
  27. RISPERDAL [Concomitant]
     Indication: RESTLESSNESS
     Dosage: 1 ML, 1X/DAY
     Route: 048
     Dates: start: 20111017, end: 20111018
  28. DECADRON [Suspect]
     Dosage: 2 MG, 2X/DAY
     Route: 048
     Dates: start: 20110826, end: 20110901
  29. NORVASC [Concomitant]
     Dosage: 5 MG, 1X/DAY
     Route: 048
     Dates: start: 20110814, end: 20111020

REACTIONS (1)
  - PNEUMOCYSTIS JIROVECI PNEUMONIA [None]
